FAERS Safety Report 10928066 (Version 1)
Quarter: 2015Q1

REPORT INFORMATION
  Report Type: Spontaneous
  Country: BE (occurrence: BE)
  Receive Date: 20150319
  Receipt Date: 20150319
  Transmission Date: 20150721
  Serious: Yes (Hospitalization, Other)
  Sender: FDA-Public Use
  Company Number: BE-PFIZER INC-2015094528

PATIENT
  Sex: Female

DRUGS (1)
  1. PANTOMED [Suspect]
     Active Substance: DEXPANTHENOL
     Dosage: DAILY
     Route: 048

REACTIONS (1)
  - Renal failure [Unknown]
